FAERS Safety Report 7350796-4 (Version None)
Quarter: 2011Q1

REPORT INFORMATION
  Report Type: 
  Country: None (occurrence: None)
  Receive Date: 20110314
  Receipt Date: 20110308
  Transmission Date: 20110831
  Serious: No
  Sender: FDA-Public Use
  Company Number: US-PFIZER INC-2011051073

PATIENT
  Sex: Female
  Weight: 65.76 kg

DRUGS (3)
  1. PROGESTERONE [Concomitant]
     Dosage: 1.25 MG, UNK
  2. PREMARIN [Suspect]
     Dosage: UNK
     Route: 067
     Dates: start: 20110303
  3. ESTRADIOL [Concomitant]
     Dosage: 0.25 MG, UNK

REACTIONS (5)
  - ABDOMINAL DISTENSION [None]
  - HEADACHE [None]
  - NAUSEA [None]
  - MICTURITION URGENCY [None]
  - VIRAL INFECTION [None]
